FAERS Safety Report 4808205-2 (Version None)
Quarter: 2005Q4

REPORT INFORMATION
  Report Type: 
  Country: None (occurrence: None)
  Receive Date: 20051021
  Receipt Date: 20051012
  Transmission Date: 20060501
  Serious: Yes (Congenital Anomaly)
  Sender: FDA-Public Use
  Company Number: 2005141969

PATIENT

DRUGS (3)
  1. PHENYTOIN SODIUM [Suspect]
     Indication: ILL-DEFINED DISORDER
  2. TOPIRAMATE [Suspect]
     Indication: ILL-DEFINED DISORDER
  3. VIGABATRIN (VIGABATRIN) [Suspect]
     Indication: ILL-DEFINED DISORDER

REACTIONS (2)
  - CONGENITAL VESICOURETERIC REFLUX [None]
  - DRUG EXPOSURE DURING PREGNANCY [None]
